FAERS Safety Report 5858620-3 (Version None)
Quarter: 2008Q3

REPORT INFORMATION
  Report Type: 
  Country: None (occurrence: None)
  Receive Date: 20080826
  Receipt Date: 20080817
  Transmission Date: 20090109
  Serious: Yes (Hospitalization, Other)
  Sender: FDA-Public Use
  Company Number: US-PFIZER INC-2008069170

PATIENT
  Sex: Female
  Weight: 58.1 kg

DRUGS (2)
  1. CHANTIX [Suspect]
     Dates: start: 20080801, end: 20080817
  2. ALL OTHER THERAPEUTIC PRODUCTS [Concomitant]

REACTIONS (4)
  - CHEST PAIN [None]
  - DEVICE FAILURE [None]
  - HYPERHIDROSIS [None]
  - PAIN IN EXTREMITY [None]
